FAERS Safety Report 7952714-4 (Version None)
Quarter: 2011Q4

REPORT INFORMATION
  Report Type: 
  Country: None (occurrence: None)
  Receive Date: 20111201
  Receipt Date: 20111122
  Transmission Date: 20120403
  Serious: No
  Sender: FDA-Public Use
  Company Number: US-B.I. PHARMACEUTICALS,INC./RIDGEFIELD-2011-BP-26746BP

PATIENT
  Age: 81 Year
  Sex: Male

DRUGS (15)
  1. ATENOLOL [Concomitant]
     Indication: HYPERTENSION
  2. FLOMAX [Concomitant]
     Indication: BENIGN PROSTATIC HYPERPLASIA
  3. PREDNISONE TAB [Concomitant]
     Indication: INFLAMMATION
  4. VICODINE [Concomitant]
     Indication: PAIN
  5. MELOXICAM [Concomitant]
     Indication: PAIN
  6. KLOR-CON [Concomitant]
     Indication: SUPPLEMENTATION THERAPY
  7. COLCHICINE [Concomitant]
     Indication: GOUT
  8. VYTORIN [Concomitant]
     Indication: BLOOD CHOLESTEROL INCREASED
  9. CARDAMAZEPINE [Concomitant]
     Indication: NEURALGIA
  10. PRADAXA [Suspect]
     Indication: ATRIAL FIBRILLATION
     Dosage: 300 MG
     Route: 048
     Dates: start: 20101101, end: 20111101
  11. LASIX [Concomitant]
     Indication: HYPERTENSION
  12. ALLOPURINOL [Concomitant]
     Indication: GOUT
  13. ASPIRIN [Concomitant]
     Indication: CARDIAC DISORDER
  14. XANAX [Concomitant]
     Indication: ANXIETY
  15. SYNTHROID [Concomitant]
     Indication: HYPOTHYROIDISM

REACTIONS (2)
  - ARTHRALGIA [None]
  - PARAESTHESIA [None]
